FAERS Safety Report 4450729-4 (Version None)
Quarter: 2004Q3

REPORT INFORMATION
  Report Type: 
  Country: None (occurrence: None)
  Receive Date: 20040914
  Receipt Date: 20040914
  Transmission Date: 20050211
  Serious: No
  Sender: FDA-Public Use
  Company Number: None

PATIENT
  Age: 76 Year
  Sex: Male
  Weight: 96.1626 kg

DRUGS (1)
  1. NITRO-DUR [Suspect]
     Dosage: 0.4MG

REACTIONS (1)
  - DRUG TOLERANCE INCREASED [None]
